FAERS Safety Report 8950709 (Version 1)
Quarter: 2012Q4

REPORT INFORMATION
  Report Type: Spontaneous
  Country: US (occurrence: None)
  Receive Date: 20121128
  Receipt Date: 20121128
  Transmission Date: 20130627
  Serious: Yes (Hospitalization)
  Sender: FDA-Public Use
  Company Number: VAL_01003_2012

PATIENT
  Age: 36 Year
  Sex: Female

DRUGS (1)
  1. BROMOCRIPTINE [Suspect]
     Indication: SUPPRESSED LACTATION
     Route: 048

REACTIONS (3)
  - Torsade de pointes [None]
  - Syncope [None]
  - Electrocardiogram QT prolonged [None]
